FAERS Safety Report 7477608-2 (Version None)
Quarter: 2011Q2

REPORT INFORMATION
  Report Type: 
  Country: None (occurrence: None)
  Receive Date: 20110513
  Receipt Date: 20110505
  Transmission Date: 20111010
  Serious: Yes (Life-Threatening)
  Sender: FDA-Public Use
  Company Number: IT-JNJFOC-20110405804

PATIENT
  Sex: Female

DRUGS (4)
  1. LYRICA [Concomitant]
     Indication: ILL-DEFINED DISORDER
     Route: 065
  2. EUTIROX [Concomitant]
     Indication: ILL-DEFINED DISORDER
     Route: 065
  3. DOXORUBICIN HCL [Suspect]
     Indication: OVARIAN CANCER RECURRENT
     Route: 042
  4. ARIXTRA [Concomitant]
     Indication: ILL-DEFINED DISORDER
     Route: 065

REACTIONS (6)
  - OBSTRUCTIVE AIRWAYS DISORDER [None]
  - INFUSION RELATED REACTION [None]
  - LIP OEDEMA [None]
  - DYSPNOEA [None]
  - OEDEMA MOUTH [None]
  - NASAL OBSTRUCTION [None]
